FAERS Safety Report 18563258 (Version 3)
Quarter: 2021Q1

REPORT INFORMATION
  Report Type: Spontaneous
  Country: US (occurrence: US)
  Receive Date: 20201201
  Receipt Date: 20210113
  Transmission Date: 20210419
  Serious: Yes (Other)
  Sender: FDA-Public Use
  Company Number: US-ASTRAZENECA-2020SF57622

PATIENT
  Age: 643 Month
  Sex: Female
  Weight: 111.1 kg

DRUGS (3)
  1. FASENRA [Suspect]
     Active Substance: BENRALIZUMAB
     Indication: ASTHMA
     Dosage: 30MG EVERY 8 WEEKS
     Route: 058
     Dates: start: 2019
  2. FASENRA [Suspect]
     Active Substance: BENRALIZUMAB
     Route: 058
  3. FASENRA [Suspect]
     Active Substance: BENRALIZUMAB
     Indication: ASTHMA
     Dosage: 30MG EVERY 4 WEEKS FOR THE FIRST 3 DOSES
     Route: 058
     Dates: start: 2019

REACTIONS (16)
  - Muscle disorder [Unknown]
  - Discomfort [Unknown]
  - Inappropriate schedule of product administration [Unknown]
  - Device leakage [Unknown]
  - Asthma [Unknown]
  - Trigger finger [Unknown]
  - Endotracheal intubation complication [Unknown]
  - Cough [Unknown]
  - Dysphonia [Unknown]
  - Ocular hyperaemia [Unknown]
  - Illness [Unknown]
  - Chest discomfort [Unknown]
  - Corneal infection [Unknown]
  - Pulmonary congestion [Unknown]
  - Pyrexia [Unknown]
  - Device issue [Unknown]

NARRATIVE: CASE EVENT DATE: 202002
